FAERS Safety Report 5068322-1 (Version None)
Quarter: 2006Q3

REPORT INFORMATION
  Report Type: 
  Country: None (occurrence: None)
  Receive Date: 20060802
  Receipt Date: 20050802
  Transmission Date: 20061208
  Serious: No
  Sender: FDA-Public Use
  Company Number: US-BRISTOL-MYERS SQUIBB COMPANY-13059944

PATIENT
  Age: 69 Year
  Sex: Male
  Weight: 109 kg

DRUGS (11)
  1. COUMADIN [Suspect]
     Indication: MYOCARDIAL INFARCTION
     Dosage: 0.5 MG DAILY ALTERNATING WITH 0.75 MG DAILY
  2. KLONOPIN [Concomitant]
  3. PAXIL [Concomitant]
  4. FOLIC ACID [Concomitant]
  5. FUROSEMIDE [Concomitant]
  6. CO-Q-10 [Concomitant]
  7. CHONDROITIN [Concomitant]
  8. GLUCOSAMINE [Concomitant]
  9. VITAMIN B-12 [Concomitant]
  10. OMEGA 3 FISH OIL [Concomitant]
  11. NASONEX [Concomitant]

REACTIONS (1)
  - INTERNATIONAL NORMALISED RATIO INCREASED [None]
